FAERS Safety Report 16641355 (Version 1)
Quarter: 2019Q3

REPORT INFORMATION
  Report Type: Report from Study
  Country: CA (occurrence: CA)
  Receive Date: 20190729
  Receipt Date: 20190729
  Transmission Date: 20191004
  Serious: Yes (Hospitalization, Other)
  Sender: FDA-Public Use
  Company Number: CA-GLAXOSMITHKLINE-CA2019AMR134475

PATIENT
  Sex: Male

DRUGS (11)
  1. ZOPICLONE [Concomitant]
     Active Substance: ZOPICLONE
     Indication: ASTHMA
     Dosage: UNK
  2. SYMBICORT [Suspect]
     Active Substance: BUDESONIDE\FORMOTEROL FUMARATE DIHYDRATE
     Indication: ASTHMA
     Dosage: 2 PUFF(S), BID (2 ADDITIONAL INHLATAIONS AS NEEDED TO QID)
     Route: 055
  3. PREDNISONE. [Concomitant]
     Active Substance: PREDNISONE
     Dosage: 50 MG, QD
  4. SERTRALINE [Suspect]
     Active Substance: SERTRALINE HYDROCHLORIDE
     Indication: ASTHMA
     Dosage: UNK
  5. PREDNISONE. [Concomitant]
     Active Substance: PREDNISONE
     Indication: ASTHMA
     Dosage: UNK
     Route: 048
  6. MEPOLIZUMAB [Suspect]
     Active Substance: MEPOLIZUMAB
     Indication: ASTHMA
     Dosage: 100 MG, Z (1 MONTHS)
     Route: 042
     Dates: start: 20170818
  7. PREDNISONE. [Concomitant]
     Active Substance: PREDNISONE
     Dosage: 40 MG, UNK (FOR 5 DAYS)
  8. VENTOLIN [Suspect]
     Active Substance: ALBUTEROL SULFATE
     Indication: ASTHMA
     Dosage: UNK, PRN
  9. VENTOLIN [Suspect]
     Active Substance: ALBUTEROL SULFATE
     Dosage: UNK, PRN (100 MCG 2 PUFFS Q.6H)
  10. VENTOLIN [Suspect]
     Active Substance: ALBUTEROL SULFATE
     Dosage: UNK, QD (50 MG)
     Route: 048
  11. ADVAIR HFA [Concomitant]
     Active Substance: FLUTICASONE PROPIONATE\SALMETEROL XINAFOATE
     Indication: ASTHMA
     Dosage: UNK

REACTIONS (102)
  - Asthma [Unknown]
  - Skin mass [Unknown]
  - Hypoventilation [Unknown]
  - Obstructive airways disorder [Unknown]
  - Pulmonary function test abnormal [Unknown]
  - Groin pain [Unknown]
  - Impaired work ability [Unknown]
  - Addison^s disease [Unknown]
  - Scar [Unknown]
  - Dyspnoea [Unknown]
  - Wheezing [Unknown]
  - Ear disorder [Unknown]
  - Motor dysfunction [Unknown]
  - Cardiac disorder [Unknown]
  - Somnolence [Unknown]
  - Intervertebral disc protrusion [Unknown]
  - Anger [Unknown]
  - Abdominal discomfort [Unknown]
  - Bronchitis [Unknown]
  - Syncope [Unknown]
  - Blood immunoglobulin E decreased [Unknown]
  - Pharyngeal erythema [Unknown]
  - Nasal mucosal discolouration [Unknown]
  - Nasopharyngitis [Unknown]
  - Intervertebral disc degeneration [Unknown]
  - Hepatosplenomegaly [Unknown]
  - Abdominal tenderness [Unknown]
  - Tracheal disorder [Unknown]
  - Anxiety [Unknown]
  - Excessive masturbation [Unknown]
  - Bronchial wall thickening [Unknown]
  - Decreased appetite [Unknown]
  - Burning sensation [Unknown]
  - Dermatitis [Unknown]
  - Kyphosis [Unknown]
  - Arthralgia [Unknown]
  - Nasal congestion [Unknown]
  - Pyrexia [Unknown]
  - Oxygen saturation decreased [Unknown]
  - Pneumonia [Unknown]
  - Musculoskeletal pain [Unknown]
  - Pruritus [Unknown]
  - Suicidal ideation [Unknown]
  - Lung hyperinflation [Unknown]
  - Communication disorder [Unknown]
  - Pericarditis [Unknown]
  - Ligament injury [Unknown]
  - Malaise [Unknown]
  - Joint effusion [Unknown]
  - Bacterial infection [Unknown]
  - Respiration abnormal [Unknown]
  - Hypoxia [Unknown]
  - Abdominal distension [Unknown]
  - Retching [Unknown]
  - Pain of skin [Unknown]
  - Arthritis infective [Unknown]
  - Productive cough [Unknown]
  - Influenza [Unknown]
  - Tachypnoea [Unknown]
  - Mass [Unknown]
  - Hypertension [Unknown]
  - Depressed mood [Unknown]
  - Weight decreased [Recovering/Resolving]
  - Palpitations [Unknown]
  - Adrenal insufficiency [Unknown]
  - Dyspnoea exertional [Unknown]
  - Cognitive disorder [Unknown]
  - Sleep disorder [Unknown]
  - Strabismus [Unknown]
  - Dermal cyst [Unknown]
  - Meniscus injury [Unknown]
  - Haemorrhage [Unknown]
  - Fatigue [Unknown]
  - Pain [Unknown]
  - Headache [Unknown]
  - Blood immunoglobulin E increased [Unknown]
  - Chest discomfort [Unknown]
  - Haemoglobin increased [Unknown]
  - Therapeutic product effect incomplete [Unknown]
  - Carpal tunnel syndrome [Unknown]
  - Diarrhoea [Unknown]
  - Restrictive pulmonary disease [Unknown]
  - Tremor [Unknown]
  - Electrocardiogram QRS complex prolonged [Unknown]
  - Upper-airway cough syndrome [Unknown]
  - Myelopathy [Unknown]
  - Blood test abnormal [Unknown]
  - Cough [Unknown]
  - Vomiting [Unknown]
  - Right atrial enlargement [Unknown]
  - Sinus tachycardia [Unknown]
  - Infection [Unknown]
  - Paraesthesia [Unknown]
  - Deafness [Unknown]
  - Depression [Unknown]
  - Viral disease carrier [Unknown]
  - Peripheral swelling [Unknown]
  - Bundle branch block right [Unknown]
  - Dry skin [Unknown]
  - Bronchopulmonary dysplasia [Unknown]
  - Hypoaesthesia [Unknown]
  - Asthenia [Unknown]
